FAERS Safety Report 20840265 (Version 2)
Quarter: 2023Q1

REPORT INFORMATION
  Report Type: Spontaneous
  Country: JP (occurrence: JP)
  Receive Date: 20220517
  Receipt Date: 20230316
  Transmission Date: 20230418
  Serious: Yes (Death, Hospitalization, Other)
  Sender: FDA-Public Use
  Company Number: JP-BRISTOL-MYERS SQUIBB COMPANY-2022-031257

PATIENT
  Age: 70 Year
  Sex: Male

DRUGS (7)
  1. VIDAZA [Suspect]
     Active Substance: AZACITIDINE
     Indication: Myelodysplastic syndrome
     Dosage: INITIATED FROM 26 APR (THE PATIENT STARTED TO RECEIVE THE 12TH CYCLE ?OF VIDAZA
  2. VIDAZA [Suspect]
     Active Substance: AZACITIDINE
     Indication: Acute myeloid leukaemia
     Dosage: 13TH CYCLE OF VIDAZA AT AN UNKNOWN DOSE (UNTIL AN UNKNOWN DATE) FROM 21 JUN, AND TOTAL OF 4 DOSES WA
  3. VENETOCLAX [Suspect]
     Active Substance: VENETOCLAX
     Indication: Myelodysplastic syndrome
     Dosage: INITIATED FROM 26 APR
     Route: 048
  4. VENETOCLAX [Suspect]
     Active Substance: VENETOCLAX
     Indication: Acute myeloid leukaemia
     Dosage: DAILY ON DAY 1, DAY 10 AND DAY 14
     Route: 048
  5. VENETOCLAX [Suspect]
     Active Substance: VENETOCLAX
     Route: 048
  6. VENETOCLAX [Suspect]
     Active Substance: VENETOCLAX
     Dosage: THE DAILY DOSE OF VENETOCLAX WAS GRADUALLY INCREASED AND REACHED AT 200 MG ON 12 MAY
     Route: 048
  7. FENTANYL [Suspect]
     Active Substance: FENTANYL
     Indication: Somnolence

REACTIONS (8)
  - Myelosuppression [Unknown]
  - Pyrexia [Recovering/Resolving]
  - Neck mass [Unknown]
  - Somnolence [Recovering/Resolving]
  - Diarrhoea [Unknown]
  - Tumour lysis syndrome [Unknown]
  - Subarachnoid haemorrhage [Unknown]
  - Pneumonia [Fatal]
